FAERS Safety Report 4372414-X (Version None)
Quarter: 2004Q2

REPORT INFORMATION
  Report Type: 
  Country: None (occurrence: None)
  Receive Date: 20040602
  Receipt Date: 20040518
  Transmission Date: 20050107
  Serious: Yes (Hospitalization)
  Sender: FDA-Public Use
  Company Number: 04P-008-0251883-00

PATIENT
  Age: 16 Year
  Sex: Male

DRUGS (1)
  1. VALPROATE SODIUM [Suspect]
     Indication: CONVULSION
     Dates: end: 20031201

REACTIONS (3)
  - FEMUR FRACTURE [None]
  - OSTEOPOROSIS [None]
  - PATHOLOGICAL FRACTURE [None]
